FAERS Safety Report 18073245 (Version 1)
Quarter: 2020Q3

REPORT INFORMATION
  Report Type: Spontaneous
  Country: US (occurrence: US)
  Receive Date: 20200724
  Receipt Date: 20200724
  Transmission Date: 20201103
  Serious: Yes (Other)
  Sender: FDA-Public Use
  Company Number: None

PATIENT
  Age: 86 Year
  Sex: Male
  Weight: 79.1 kg

DRUGS (20)
  1. BUDESONIDE NEB [Concomitant]
     Dates: start: 20200721, end: 20200722
  2. ASPIRIN. [Concomitant]
     Active Substance: ASPIRIN
     Dates: start: 20200719, end: 20200720
  3. ASCORBIC ACID. [Concomitant]
     Active Substance: ASCORBIC ACID
     Dates: start: 20200720, end: 20200722
  4. VITAMIN D [Concomitant]
     Active Substance: VITAMIN D NOS
     Dates: start: 20200720, end: 20200721
  5. ACETYICYSTEINE [Concomitant]
     Dates: start: 20200720, end: 20200722
  6. METHYPREDNISOLONE [Concomitant]
     Active Substance: METHYLPREDNISOLONE
     Dates: start: 20200720, end: 20200722
  7. MELATONIN [Concomitant]
     Active Substance: MELATONIN
     Dates: start: 20200720, end: 20200720
  8. FLUTICASONE. [Concomitant]
     Active Substance: FLUTICASONE
     Dates: start: 20200720, end: 20200721
  9. METHIMAZOLE. [Concomitant]
     Active Substance: METHIMAZOLE
     Dates: start: 20200720, end: 20200721
  10. THIAMIN [Concomitant]
     Active Substance: THIAMINE
     Dates: start: 20200720, end: 20200721
  11. ENOXAPARIN [Concomitant]
     Active Substance: ENOXAPARIN
     Dates: start: 20200720, end: 20200722
  12. ACETAMINOPHEN. [Concomitant]
     Active Substance: ACETAMINOPHEN
     Dates: start: 20200719, end: 20200720
  13. ATORVASTATIN [Concomitant]
     Active Substance: ATORVASTATIN
     Dates: start: 20200719
  14. AVITHROMYCIN [Concomitant]
     Dates: start: 20200720, end: 20200722
  15. ZINC SULFATE. [Concomitant]
     Active Substance: ZINC SULFATE
     Dates: start: 20200720, end: 20200721
  16. VANCOMYCIN [Concomitant]
     Active Substance: VANCOMYCIN
     Dates: start: 20200720, end: 20200721
  17. OMNIPAQUE [Concomitant]
     Active Substance: IOHEXOL
     Dates: start: 20200721
  18. FAMOTIDINE. [Concomitant]
     Active Substance: FAMOTIDINE
     Dates: start: 20200720, end: 20200722
  19. REMDESIVIR 100MG/ML [Suspect]
     Active Substance: REMDESIVIR
     Indication: COVID-19
     Dosage: FREQUENCY: ONCE
     Route: 042
     Dates: start: 20200721, end: 20200721
  20. CEFTRIAXONE. [Concomitant]
     Active Substance: CEFTRIAXONE
     Dates: start: 20200720, end: 20200722

REACTIONS (10)
  - Alanine aminotransferase increased [None]
  - White blood cell count increased [None]
  - Bacterial infection [None]
  - Agitation [None]
  - Disease progression [None]
  - Aspartate aminotransferase increased [None]
  - Blood creatinine increased [None]
  - Procalcitonin increased [None]
  - Creatinine renal clearance decreased [None]
  - Respiratory failure [None]
